FAERS Safety Report 17589533 (Version 1)
Quarter: 2020Q1

REPORT INFORMATION
  Report Type: Spontaneous
  Country: US (occurrence: US)
  Receive Date: 20200327
  Receipt Date: 20200327
  Transmission Date: 20200409
  Serious: Yes (Death, Hospitalization, Other)
  Sender: FDA-Public Use
  Company Number: US-SA-2020SA073254

PATIENT
  Age: 51 Year
  Sex: Male

DRUGS (2)
  1. INSULIN GLARGINE [Suspect]
     Active Substance: INSULIN GLARGINE
     Indication: COMPLETED SUICIDE
     Dosage: 90 IU, QD
  2. INSULIN GLARGINE [Suspect]
     Active Substance: INSULIN GLARGINE
     Dosage: 180 IU, TOTAL WITHIN 45 TO 60 MINUTES

REACTIONS (5)
  - Loss of consciousness [Fatal]
  - Brain death [Fatal]
  - Unresponsive to stimuli [Fatal]
  - Blood glucose decreased [Fatal]
  - Intentional overdose [Fatal]
